FAERS Safety Report 5037395-4 (Version None)
Quarter: 2006Q2

REPORT INFORMATION
  Report Type: 
  Country: None (occurrence: None)
  Receive Date: 20060601
  Receipt Date: 20060209
  Transmission Date: 20061013
  Serious: No
  Sender: FDA-Public Use
  Company Number: 2006PV008431

PATIENT
  Age: 66 Year
  Sex: Male
  Weight: 91.6266 kg

DRUGS (5)
  1. BYETTA [Suspect]
     Indication: DIABETES MELLITUS NON-INSULIN-DEPENDENT
     Dosage: 5 MCG;BID;SC
     Route: 058
     Dates: start: 20051201, end: 20060101
  2. HUMULOG 75/25 [Concomitant]
  3. ACTOS [Concomitant]
  4. GLIPIZIDE [Concomitant]
  5. METFORMIN [Concomitant]

REACTIONS (5)
  - ANOREXIA [None]
  - ERUCTATION [None]
  - NAUSEA [None]
  - VOMITING [None]
  - WEIGHT DECREASED [None]
